FAERS Safety Report 5041533-7 (Version None)
Quarter: 2006Q2

REPORT INFORMATION
  Report Type: 
  Country: None (occurrence: None)
  Receive Date: 20060627
  Receipt Date: 20060618
  Transmission Date: 20061013
  Serious: Yes (Other)
  Sender: FDA-Public Use
  Company Number: 2006076842

PATIENT
  Age: 59 Year
  Sex: Male
  Weight: 95.2554 kg

DRUGS (1)
  1. COOL MINT LISTERINE (MENTHOL, METHYL SALICYLATE, EUCALYPTOL, THYMOL) [Suspect]
     Indication: ALCOHOL USE
     Dosage: 3 BOTTLES ONCE, ORAL
     Route: 048
     Dates: start: 20060618, end: 20060618

REACTIONS (1)
  - INTENTIONAL DRUG MISUSE [None]
